FAERS Safety Report 22313514 (Version 2)
Quarter: 2023Q2

REPORT INFORMATION
  Report Type: Spontaneous
  Country: AT (occurrence: None)
  Receive Date: 20230512
  Receipt Date: 20230524
  Transmission Date: 20230722
  Serious: Yes (Other)
  Sender: FDA-Public Use
  Company Number: AT-Merck Healthcare KGaA-9399380

PATIENT
  Age: 32 Year
  Sex: Female
  Weight: 48 kg

DRUGS (2)
  1. MAVENCLAD [Suspect]
     Active Substance: CLADRIBINE
     Indication: Multiple sclerosis
     Dosage: YEAR ONE WEEK ONE THERAPY
     Dates: start: 20230306
  2. CORTISONE [Concomitant]
     Active Substance: CORTISONE
     Indication: Multiple sclerosis

REACTIONS (2)
  - High risk pregnancy [Unknown]
  - Maternal exposure timing unspecified [Unknown]
